FAERS Safety Report 6753624-0 (Version None)
Quarter: 2010Q2

REPORT INFORMATION
  Report Type: 
  Country: None (occurrence: None)
  Receive Date: 20100603
  Receipt Date: 20100524
  Transmission Date: 20101027
  Serious: Yes (Hospitalization)
  Sender: FDA-Public Use
  Company Number: IT-BAXTER-2010BH013925

PATIENT
  Age: 60 Year
  Sex: Male

DRUGS (3)
  1. ENDOXAN BAXTER [Suspect]
     Indication: CHRONIC LYMPHOCYTIC LEUKAEMIA
     Route: 042
     Dates: start: 20100419, end: 20100429
  2. FLUDARABINE [Suspect]
     Indication: CHRONIC LYMPHOCYTIC LEUKAEMIA
     Route: 042
     Dates: start: 20100419, end: 20100429
  3. ONDANSETRON [Concomitant]
     Indication: DRUG USE FOR UNKNOWN INDICATION
     Route: 042

REACTIONS (3)
  - FEBRILE NEUTROPENIA [None]
  - GASTROINTESTINAL TOXICITY [None]
  - PANCYTOPENIA [None]
